FAERS Safety Report 9859705 (Version 1)
Quarter: 2014Q1

REPORT INFORMATION
  Report Type: Spontaneous
  Country: DK (occurrence: FR)
  Receive Date: 20140131
  Receipt Date: 20140131
  Transmission Date: 20141002
  Serious: Yes (Life-Threatening)
  Sender: FDA-Public Use
  Company Number: FR-FRI-1000053300

PATIENT
  Age: 36 Year
  Sex: Female

DRUGS (11)
  1. ESCITALOPRAM [Suspect]
     Dates: end: 20131203
  2. VALIUM [Suspect]
     Dates: end: 20131203
  3. STILNOX [Suspect]
     Dates: end: 20131203
  4. VALPROATE DE SODIUM [Suspect]
     Dates: end: 20131203
  5. TERCIAN [Suspect]
     Dates: end: 20131203
  6. LEVOMEPROMAZINE [Suspect]
     Dates: end: 20131203
  7. ZYPREXA [Suspect]
     Dates: end: 20131203
  8. RELPAX [Suspect]
     Dates: end: 20131203
  9. NOCTRAN [Suspect]
     Dates: end: 20131203
  10. KETUM [Concomitant]
  11. PARACETAMOL [Concomitant]
     Indication: PAIN

REACTIONS (4)
  - Coma [Recovered/Resolved]
  - Disturbance in attention [Recovered/Resolved]
  - Hypothermia [Recovered/Resolved]
  - Circulatory collapse [Recovered/Resolved]
